FAERS Safety Report 25064424 (Version 1)
Quarter: 2025Q1

REPORT INFORMATION
  Report Type: Spontaneous
  Country: US (occurrence: US)
  Receive Date: 20250311
  Receipt Date: 20250311
  Transmission Date: 20250409
  Serious: Yes (Life-Threatening, Hospitalization, Other)
  Sender: PFIZER
  Company Number: US-PFIZER INC-PV202500027302

PATIENT
  Age: 76 Year
  Sex: Female

DRUGS (11)
  1. VANCOMYCIN HYDROCHLORIDE [Suspect]
     Active Substance: VANCOMYCIN HYDROCHLORIDE
  2. GABAPENTIN [Concomitant]
     Active Substance: GABAPENTIN
  3. LEVOTHYROXINE [Concomitant]
     Active Substance: LEVOTHYROXINE
  4. PANTOPRAZOLE [Concomitant]
     Active Substance: PANTOPRAZOLE
  5. PAROXETINE [Concomitant]
     Active Substance: PAROXETINE
  6. TRAZODONE [Concomitant]
     Active Substance: TRAZODONE HYDROCHLORIDE
  7. SIMVASTATIN [Concomitant]
     Active Substance: SIMVASTATIN
  8. METFORMIN [Concomitant]
     Active Substance: METFORMIN HYDROCHLORIDE
  9. LIRAGLUTIDE [Concomitant]
     Active Substance: LIRAGLUTIDE
  10. INSULIN GLARGINE [Concomitant]
     Active Substance: INSULIN GLARGINE
  11. ACETAMINOPHEN\HYDROCODONE [Concomitant]
     Active Substance: ACETAMINOPHEN\HYDROCODONE

REACTIONS (2)
  - Anaphylactic shock [Recovering/Resolving]
  - Occupational exposure to product [Unknown]
